FAERS Safety Report 6625995-7 (Version None)
Quarter: 2010Q1

REPORT INFORMATION
  Report Type: 
  Country: None (occurrence: None)
  Receive Date: 20100310
  Receipt Date: 20100308
  Transmission Date: 20100710
  Serious: Yes (Life-Threatening)
  Sender: FDA-Public Use
  Company Number: FR-SANOFI-AVENTIS-2010SA012853

PATIENT
  Age: 76 Year
  Sex: Female

DRUGS (10)
  1. ELOXATIN [Suspect]
     Indication: RECTOSIGMOID CANCER
     Dosage: DOSE:5 MILLIGRAM(S)/MILLILITRE
     Route: 041
     Dates: start: 20091001, end: 20091229
  2. LYSANXIA [Concomitant]
     Route: 048
  3. SINGULAIR [Concomitant]
     Route: 048
  4. KARDEGIC [Concomitant]
     Route: 048
  5. BUDESONIDE [Concomitant]
     Route: 048
  6. VENTOLIN [Concomitant]
     Route: 048
  7. LEVOTHYROX [Concomitant]
     Route: 048
  8. FLECAINIDE ACETATE [Concomitant]
     Route: 065
  9. CANDESARTAN CILEXETIL/HYDROCHLOROTHIAZIDE (ATACAND HCT) [Concomitant]
     Route: 048
  10. CHONDROSULF [Concomitant]
     Route: 048

REACTIONS (3)
  - ANAPHYLACTIC SHOCK [None]
  - CARDIO-RESPIRATORY ARREST [None]
  - LOSS OF CONSCIOUSNESS [None]
